FAERS Safety Report 6461984-3 (Version None)
Quarter: 2009Q4

REPORT INFORMATION
  Report Type: 
  Country: None (occurrence: None)
  Receive Date: 20091130
  Receipt Date: 20091118
  Transmission Date: 20100525
  Serious: Yes (Other)
  Sender: FDA-Public Use
  Company Number: JP-SANOFI-AVENTIS-2009SA002786

PATIENT

DRUGS (1)
  1. ARAVA [Suspect]
     Route: 048

REACTIONS (1)
  - HISTIOCYTOSIS HAEMATOPHAGIC [None]
